FAERS Safety Report 9229073 (Version 1)
Quarter: 2013Q2

REPORT INFORMATION
  Report Type: Spontaneous
  Country: GB (occurrence: GB)
  Receive Date: 20130412
  Receipt Date: 20130412
  Transmission Date: 20140414
  Serious: Yes (Other)
  Sender: FDA-Public Use
  Company Number: GB-PFIZER INC-2013059908

PATIENT
  Age: 25 Year
  Sex: Female
  Weight: 78 kg

DRUGS (1)
  1. DEPO-PROVERA [Suspect]
     Dosage: UNK
     Route: 030
     Dates: start: 20121127, end: 20130213

REACTIONS (1)
  - Contusion [Recovered/Resolved]
